FAERS Safety Report 22134004 (Version 1)
Quarter: 2023Q1

REPORT INFORMATION
  Report Type: Spontaneous
  Country: US (occurrence: None)
  Receive Date: 20230324
  Receipt Date: 20230324
  Transmission Date: 20230418
  Serious: No
  Sender: FDA-Public Use
  Company Number: 2023A051998

PATIENT
  Sex: Male
  Weight: 73.9 kg

DRUGS (1)
  1. BUDESONIDE\FORMOTEROL\GLYCOPYRRONIUM [Suspect]
     Active Substance: BUDESONIDE\FORMOTEROL\GLYCOPYRRONIUM
     Indication: Chronic obstructive pulmonary disease
     Route: 055

REACTIONS (11)
  - Rhinorrhoea [Unknown]
  - Lacrimation increased [Unknown]
  - Vocal cord disorder [Unknown]
  - Dysphonia [Unknown]
  - Memory impairment [Unknown]
  - Sneezing [Unknown]
  - Cough [Unknown]
  - Wrong technique in device usage process [Unknown]
  - Intentional product misuse [Unknown]
  - Product dose omission issue [Unknown]
  - Off label use [Unknown]
